FAERS Safety Report 5275287-6 (Version None)
Quarter: 2007Q1

REPORT INFORMATION
  Report Type: 
  Country: None (occurrence: None)
  Receive Date: 20070326
  Receipt Date: 20070316
  Transmission Date: 20070707
  Serious: Yes (Life-Threatening)
  Sender: FDA-Public Use
  Company Number: JP-BAYER-200710214BYL

PATIENT
  Age: 85 Year
  Sex: Male

DRUGS (1)
  1. CIPROXAN-I.V.300 [Suspect]
     Route: 065

REACTIONS (1)
  - HEPATIC FUNCTION ABNORMAL [None]
